FAERS Safety Report 6388943-3 (Version None)
Quarter: 2009Q4

REPORT INFORMATION
  Report Type: 
  Country: None (occurrence: None)
  Receive Date: 20091001
  Receipt Date: 20090922
  Transmission Date: 20100525
  Serious: Yes (Life-Threatening, Hospitalization, Disabling, Other)
  Sender: FDA-Public Use
  Company Number: ADR29582009

PATIENT
  Sex: Female

DRUGS (8)
  1. RAMIPRIL [Suspect]
     Dosage: 7.5 MG, 1/1 DAY, ORAL
     Route: 048
     Dates: start: 20060801, end: 20060807
  2. VANCOMYCIN [Concomitant]
  3. CEFOTAXIME [Concomitant]
  4. CIPROFLOXACIN HYDROCHLORIDE [Concomitant]
  5. FLUCLOXACILLIN [Concomitant]
  6. GLIMEPIRIDE [Concomitant]
  7. METFORMIN HYDROCHLORIDE [Concomitant]
  8. PREGABALIN [Concomitant]

REACTIONS (5)
  - BLOOD CREATININE INCREASED [None]
  - C-REACTIVE PROTEIN INCREASED [None]
  - PYREXIA [None]
  - RASH ERYTHEMATOUS [None]
  - RASH GENERALISED [None]
